FAERS Safety Report 25768771 (Version 2)
Quarter: 2025Q3

REPORT INFORMATION
  Report Type: Spontaneous
  Country: JP (occurrence: JP)
  Receive Date: 20250905
  Receipt Date: 20250915
  Transmission Date: 20251020
  Serious: Yes (Life-Threatening)
  Sender: RIGEL PHARMACEUTICALS
  Company Number: JP-RIGEL-20250700231

PATIENT
  Age: 89 Year
  Sex: Female

DRUGS (3)
  1. TAVALISSE [Suspect]
     Active Substance: FOSTAMATINIB
     Indication: Immune thrombocytopenia
     Route: 048
     Dates: start: 20250702, end: 20250717
  2. PREDONINE [Concomitant]
     Active Substance: PREDNISOLONE
     Indication: Product used for unknown indication
     Dosage: 5 MG, QD
     Route: 065
  3. PREDONINE [Concomitant]
     Active Substance: PREDNISOLONE
     Dosage: 10 MG, QD
     Route: 065

REACTIONS (2)
  - Pneumonia aspiration [Recovered/Resolved]
  - White blood cell count decreased [Recovered/Resolved]

NARRATIVE: CASE EVENT DATE: 20250707
